FAERS Safety Report 7304307-X (Version None)
Quarter: 2011Q1

REPORT INFORMATION
  Report Type: 
  Country: None (occurrence: None)
  Receive Date: 20110221
  Receipt Date: 20110210
  Transmission Date: 20110831
  Serious: Yes (Other)
  Sender: FDA-Public Use
  Company Number: BR-ASTRAZENECA-2011SE08303

PATIENT
  Age: 68 Year
  Sex: Female
  Weight: 72 kg

DRUGS (6)
  1. SYNTHROID [Concomitant]
     Indication: THYROID NEOPLASM
     Route: 048
     Dates: start: 20020101
  2. SINVALIP [Concomitant]
     Indication: HYPERCHOLESTEROLAEMIA
     Route: 048
     Dates: start: 20000101, end: 20101201
  3. SINVASCOR [Concomitant]
     Indication: HYPERCHOLESTEROLAEMIA
     Route: 048
     Dates: start: 20101201
  4. OLCADIL [Concomitant]
     Route: 048
     Dates: start: 20020101
  5. ATACAND HCT [Suspect]
     Indication: HYPERTENSION
     Dosage: 8/12.5MG
     Route: 048
     Dates: start: 20060101
  6. METOPROLOL TARTRATE [Suspect]
     Indication: HYPERTENSION
     Route: 048
     Dates: start: 20101201

REACTIONS (3)
  - OESOPHAGEAL DISORDER [None]
  - DYSPEPSIA [None]
  - BLOOD PRESSURE INADEQUATELY CONTROLLED [None]
